FAERS Safety Report 11467071 (Version 1)
Quarter: 2015Q3

REPORT INFORMATION
  Report Type: Spontaneous
  Country: CH (occurrence: CH)
  Receive Date: 20150908
  Receipt Date: 20150908
  Transmission Date: 20151125
  Serious: Yes (Hospitalization)
  Sender: FDA-Public Use
  Company Number: CH-009507513-1508CHE013255

PATIENT
  Age: 63 Year
  Sex: Male

DRUGS (4)
  1. SCOPOLAMINE HYDROBROMIDE. [Suspect]
     Active Substance: SCOPOLAMINE HYDROBROMIDE
     Dosage: ONCE PER HOUR FOR 5 HOURS
     Route: 047
     Dates: start: 20150714, end: 20150714
  2. PHENYLEPHRINE [Concomitant]
     Active Substance: PHENYLEPHRINE\PHENYLEPHRINE HYDROCHLORIDE
     Indication: IRIS ADHESIONS
     Dosage: ONCE PER HOUR FOR 5 HOURS
     Route: 047
     Dates: start: 20150714, end: 20150714
  3. CELESTONE CHRONODOSE [Suspect]
     Active Substance: BETAMETHASONE ACETATE\BETAMETHASONE SODIUM PHOSPHATE
     Dosage: STRENGTH: 4 ML, ONCE, TOTAL DAILY DOSE: 24 MG
     Route: 056
     Dates: start: 20150714, end: 20150714
  4. TROPICAMIDE. [Suspect]
     Active Substance: TROPICAMIDE
     Indication: IRIS ADHESIONS
     Dosage: ONCE PER HOUR FOR 5 HOURS
     Route: 047
     Dates: start: 20150714, end: 20150714

REACTIONS (2)
  - Disorientation [Recovered/Resolved]
  - Confusional state [Recovered/Resolved]

NARRATIVE: CASE EVENT DATE: 20150714
